FAERS Safety Report 9486081 (Version 1)
Quarter: 2013Q3

REPORT INFORMATION
  Report Type: Report from Study
  Country: US (occurrence: US)
  Receive Date: 20130829
  Receipt Date: 20130829
  Transmission Date: 20140515
  Serious: Yes (Hospitalization)
  Sender: FDA-Public Use
  Company Number: US-JNJFOC-20130810160

PATIENT
  Sex: Female
  Weight: 113.4 kg

DRUGS (2)
  1. STELARA [Suspect]
     Indication: PSORIASIS
     Route: 058
     Dates: end: 2012
  2. CHLORTHALIDONE [Concomitant]
     Indication: HYPERTENSION
     Route: 048

REACTIONS (1)
  - Pleural effusion [Recovered/Resolved]
